FAERS Safety Report 13320979 (Version 2)
Quarter: 2017Q1

REPORT INFORMATION
  Report Type: Spontaneous
  Country: TH (occurrence: TH)
  Receive Date: 20170310
  Receipt Date: 20170317
  Transmission Date: 20170428
  Serious: Yes (Hospitalization, Other)
  Sender: FDA-Public Use
  Company Number: TH-ASTELLAS-2017US008802

PATIENT
  Age: 65 Year
  Sex: Female

DRUGS (2)
  1. TACROLIMUS. [Suspect]
     Active Substance: TACROLIMUS
     Indication: LIVER TRANSPLANT
     Route: 065
  2. MYCOPHENOLIC ACID. [Suspect]
     Active Substance: MYCOPHENOLIC ACID
     Indication: LIVER TRANSPLANT
     Route: 065

REACTIONS (6)
  - Renal tubular necrosis [Recovered/Resolved]
  - Hypovolaemia [Unknown]
  - Acute kidney injury [Recovered/Resolved]
  - Dengue fever [Recovered/Resolved]
  - Immunosuppressant drug level increased [Unknown]
  - Toxicity to various agents [Recovered/Resolved]
